FAERS Safety Report 5777532-7 (Version None)
Quarter: 2008Q2

REPORT INFORMATION
  Report Type: 
  Country: None (occurrence: None)
  Receive Date: 20080618
  Receipt Date: 20080609
  Transmission Date: 20081010
  Serious: Yes (Hospitalization)
  Sender: FDA-Public Use
  Company Number: JP-AMGEN-US287480

PATIENT
  Age: 76 Year
  Sex: Male

DRUGS (3)
  1. ENBREL [Suspect]
     Indication: RHEUMATOID ARTHRITIS
     Dosage: UNKNOWN
     Route: 058
     Dates: start: 20080401, end: 20080606
  2. METHOTREXATE [Suspect]
     Route: 048
  3. GLYBURIDE [Concomitant]

REACTIONS (2)
  - MELAENA [None]
  - PYREXIA [None]
